FAERS Safety Report 19785143 (Version 2)
Quarter: 2022Q2

REPORT INFORMATION
  Report Type: Spontaneous
  Country: US (occurrence: None)
  Receive Date: 20210903
  Receipt Date: 20220408
  Transmission Date: 20220721
  Serious: Yes (Other)
  Sender: FDA-Public Use
  Company Number: 2021A705514

PATIENT
  Age: 72 Year
  Sex: Female
  Weight: 68 kg

DRUGS (46)
  1. PRILOSEC [Suspect]
     Active Substance: OMEPRAZOLE MAGNESIUM
     Indication: Gastrooesophageal reflux disease
     Dosage: FOR VARIOUS DATES AND YEARS
     Route: 048
  2. PRILOSEC [Suspect]
     Active Substance: OMEPRAZOLE MAGNESIUM
     Indication: Gastrooesophageal reflux disease
     Route: 048
     Dates: start: 1992, end: 2002
  3. PRILOSEC [Suspect]
     Active Substance: OMEPRAZOLE MAGNESIUM
     Indication: Gastrooesophageal reflux disease
     Route: 065
     Dates: start: 2003
  4. PRILOSEC OTC [Suspect]
     Active Substance: OMEPRAZOLE MAGNESIUM
     Indication: Gastrooesophageal reflux disease
     Dosage: FOR VARIOUS DATES AND YEARS
     Route: 048
  5. PRILOSEC OTC [Suspect]
     Active Substance: OMEPRAZOLE MAGNESIUM
     Indication: Gastrooesophageal reflux disease
     Route: 048
     Dates: start: 2004
  6. ASPIRIN [Concomitant]
     Active Substance: ASPIRIN
  7. AZITHROMYCIN [Concomitant]
     Active Substance: AZITHROMYCIN
  8. CYMBALTA [Concomitant]
     Active Substance: DULOXETINE HYDROCHLORIDE
  9. DARVOCET [Concomitant]
     Active Substance: ACETAMINOPHEN\PROPOXYPHENE HYDROCHLORIDE
  10. HYDRALAZINE [Concomitant]
     Active Substance: HYDRALAZINE HYDROCHLORIDE
  11. IBUPROFEN [Concomitant]
     Active Substance: IBUPROFEN
  12. MORPHINE [Concomitant]
     Active Substance: MORPHINE
  13. OXYCODONE [Concomitant]
     Active Substance: OXYCODONE
  14. SAVELLA [Concomitant]
     Active Substance: MILNACIPRAN HYDROCHLORIDE
  15. LEVAQUIN [Concomitant]
     Active Substance: LEVOFLOXACIN
  16. NIFEDIPINE [Concomitant]
     Active Substance: NIFEDIPINE
  17. ALBUTEROL [Concomitant]
     Active Substance: ALBUTEROL
  18. HYDROXYZINE HYDROCHLORIDE [Concomitant]
     Active Substance: HYDROXYZINE HYDROCHLORIDE
  19. WARFARIN [Concomitant]
     Active Substance: WARFARIN
  20. METOPROLOL TARTRATE [Concomitant]
     Active Substance: METOPROLOL TARTRATE
  21. VITAMIN D3 [Concomitant]
     Active Substance: CHOLECALCIFEROL
  22. ESCIN/LEVOTHYROXINE [Concomitant]
  23. MICONAZOLE [Concomitant]
     Active Substance: MICONAZOLE
  24. NASONEX [Concomitant]
     Active Substance: MOMETASONE FUROATE
  25. ESTRADIOL [Concomitant]
     Active Substance: ESTRADIOL
  26. ACYCLOVIR [Concomitant]
     Active Substance: ACYCLOVIR
  27. AMOXIL [Concomitant]
     Active Substance: AMOXICILLIN
  28. CALCITRIOL [Concomitant]
     Active Substance: CALCITRIOL
  29. FLUZONE [Concomitant]
     Active Substance: INFLUENZA A VIRUS A/CALIFORNIA/7/2009 X-179A (H1N1) ANTIGEN (FORMALDEHYDE INACTIVATED)\INFLUENZA A V
  30. SYNTHROID [Concomitant]
     Active Substance: LEVOTHYROXINE SODIUM
  31. KETOPROFEN [Concomitant]
     Active Substance: KETOPROFEN
  32. AUGMENTIN [Concomitant]
     Active Substance: AMOXICILLIN\CLAVULANATE POTASSIUM
  33. METHOCARBAMINE [Concomitant]
  34. TIZANIDINE [Concomitant]
     Active Substance: TIZANIDINE
  35. TAMIFLU [Concomitant]
     Active Substance: OSELTAMIVIR PHOSPHATE
  36. SULFAMETHOXAZOLE\TRIMETHOPRIM [Concomitant]
     Active Substance: SULFAMETHOXAZOLE\TRIMETHOPRIM
  37. OMNICEF [Concomitant]
     Active Substance: CEFDINIR
  38. PREDNISONE [Concomitant]
     Active Substance: PREDNISONE
  39. LOSARTAN [Concomitant]
     Active Substance: LOSARTAN
  40. TESSALON [Concomitant]
     Active Substance: BENZONATATE
  41. VICODIN [Concomitant]
     Active Substance: ACETAMINOPHEN\HYDROCODONE BITARTRATE
  42. FLUTICASONE [Concomitant]
     Active Substance: FLUTICASONE
  43. DOXYCYCLINE HYCLATE [Concomitant]
     Active Substance: DOXYCYCLINE HYCLATE
  44. TRAMADOL [Concomitant]
     Active Substance: TRAMADOL
  45. DIOVAN [Concomitant]
     Active Substance: VALSARTAN
  46. DICLOFENAC [Concomitant]
     Active Substance: DICLOFENAC

REACTIONS (4)
  - Acute kidney injury [Not Recovered/Not Resolved]
  - Chronic kidney disease [Not Recovered/Not Resolved]
  - Renal failure [Not Recovered/Not Resolved]
  - Rebound acid hypersecretion [Unknown]

NARRATIVE: CASE EVENT DATE: 20120101
